FAERS Safety Report 23167117 (Version 1)
Quarter: 2023Q4

REPORT INFORMATION
  Report Type: Spontaneous
  Country: US (occurrence: None)
  Receive Date: 20231109
  Receipt Date: 20231109
  Transmission Date: 20240110
  Serious: Yes (Hospitalization, Other)
  Sender: FDA-Public Use
  Company Number: None

PATIENT
  Age: 57 Day
  Sex: Female
  Weight: 113.85 kg

DRUGS (5)
  1. DULERA [Suspect]
     Active Substance: FORMOTEROL FUMARATE DIHYDRATE\MOMETASONE FUROATE
     Indication: COVID-19
     Dosage: OTHER QUANTITY : 2 PUFF(S);?FREQUENCY : TWICE A DAY;?
     Route: 055
     Dates: start: 20231015, end: 20231018
  2. DULERA [Suspect]
     Active Substance: FORMOTEROL FUMARATE DIHYDRATE\MOMETASONE FUROATE
     Indication: Asthenia
  3. Sybicort [Concomitant]
  4. ALBUTEROL [Concomitant]
     Active Substance: ALBUTEROL
  5. METFORMIN [Concomitant]
     Active Substance: METFORMIN HYDROCHLORIDE

REACTIONS (12)
  - Blood glucose increased [None]
  - Dizziness [None]
  - Loss of consciousness [None]
  - Incoherent [None]
  - Lethargy [None]
  - Speech disorder [None]
  - Migraine [None]
  - Cerebrovascular accident [None]
  - Swelling face [None]
  - Vomiting [None]
  - Vertigo [None]
  - Near death experience [None]

NARRATIVE: CASE EVENT DATE: 20231016
